FAERS Safety Report 7575632-2 (Version None)
Quarter: 2011Q2

REPORT INFORMATION
  Report Type: 
  Country: None (occurrence: None)
  Receive Date: 20110628
  Receipt Date: 20110620
  Transmission Date: 20111010
  Serious: Yes (Hospitalization, Other)
  Sender: FDA-Public Use
  Company Number: FR-BRISTOL-MYERS SQUIBB COMPANY-15849110

PATIENT
  Age: 69 Year
  Sex: Female

DRUGS (5)
  1. TANGANIL [Concomitant]
  2. AMILORIDE HYDROCHLORIDE [Suspect]
     Indication: HYPERTENSION
     Route: 048
  3. IRBESARTAN + HYDROCHLOROTHIAZIDE [Suspect]
     Indication: HYPERTENSION
     Route: 048
  4. DETENSIEL [Concomitant]
  5. VASTAREL [Concomitant]

REACTIONS (5)
  - PNEUMOPERITONEUM [None]
  - RENAL FAILURE [None]
  - SIGMOIDITIS [None]
  - FALL [None]
  - BALANCE DISORDER [None]
